FAERS Safety Report 9427106 (Version 1)
Quarter: 2013Q3

REPORT INFORMATION
  Report Type: Spontaneous
  Country: US (occurrence: US)
  Receive Date: 20130730
  Receipt Date: 20130730
  Transmission Date: 20140515
  Serious: No
  Sender: FDA-Public Use
  Company Number: US-ABBOTT-12P-163-0972807-00

PATIENT
  Age: 57 Year
  Sex: Female
  Weight: 54.48 kg

DRUGS (3)
  1. NIASPAN (COATED) 500MG [Suspect]
     Indication: LOW DENSITY LIPOPROTEIN INCREASED
     Dates: start: 201202, end: 20120729
  2. NIASPAN (COATED) 500MG [Suspect]
     Dates: start: 20120730
  3. LISINOPRIL [Concomitant]
     Indication: HYPERTENSION

REACTIONS (2)
  - Flushing [Recovered/Resolved]
  - Pruritus [Recovered/Resolved]
